FAERS Safety Report 10919658 (Version 2)
Quarter: 2015Q2

REPORT INFORMATION
  Report Type: Spontaneous
  Country: US (occurrence: US)
  Receive Date: 20150317
  Receipt Date: 20150526
  Transmission Date: 20150821
  Serious: No
  Sender: FDA-Public Use
  Company Number: US-JNJFOC-20150214402

PATIENT
  Sex: Male

DRUGS (2)
  1. RITONAVIR. [Concomitant]
     Active Substance: RITONAVIR
     Indication: HIV TEST POSITIVE
     Route: 065
  2. PREZISTA [Suspect]
     Active Substance: DARUNAVIR ETHANOLATE
     Indication: HIV TEST POSITIVE
     Route: 048

REACTIONS (1)
  - Viral load increased [Unknown]
